FAERS Safety Report 6336260-X (Version None)
Quarter: 2009Q3

REPORT INFORMATION
  Report Type: 
  Country: None (occurrence: None)
  Receive Date: 20090901
  Receipt Date: 20090820
  Transmission Date: 20100115
  Serious: Yes (Hospitalization, Other)
  Sender: FDA-Public Use
  Company Number: SE-PFIZER INC-2009257919

PATIENT

DRUGS (6)
  1. SOMATROPIN [Suspect]
     Indication: HYPOPITUITARISM
     Dosage: 0.2 MG/DAILY
     Route: 058
     Dates: start: 20031210, end: 20070215
  2. SOMATROPIN [Suspect]
     Dosage: 0.2 MG, 1X/DAY
     Route: 058
     Dates: start: 20081028
  3. HYDROCODONE [Concomitant]
     Dosage: 10 MG, 2X/DAY
     Route: 048
     Dates: start: 20030220
  4. MINIRIN ^AVENTIS PHARMA^ [Concomitant]
     Dosage: 0.1 MG, 2X/DAY
     Route: 048
     Dates: start: 20030107
  5. LEVOTHYROXINE SODIUM [Concomitant]
     Dosage: 75 UG, 1X/DAY
     Route: 048
     Dates: start: 20031002
  6. TESTOSTERONE [Concomitant]
     Dosage: 4000 MG, EVERY 3 MONTHS
     Route: 030
     Dates: start: 20060228

REACTIONS (1)
  - PITUITARY TUMOUR BENIGN [None]
